FAERS Safety Report 24132173 (Version 3)
Quarter: 2024Q3

REPORT INFORMATION
  Report Type: Spontaneous
  Country: GB (occurrence: GB)
  Receive Date: 20240724
  Receipt Date: 20240821
  Transmission Date: 20241017
  Serious: Yes (Hospitalization)
  Sender: MYLAN
  Company Number: GB-MYLANLABS-2024M1068126

PATIENT
  Sex: Male

DRUGS (1)
  1. CLOZARIL [Suspect]
     Active Substance: CLOZAPINE
     Indication: Schizophrenia
     Dosage: 100 MILLIGRAM, BID (100MG TWICE DAILY)
     Route: 048
     Dates: start: 20240701, end: 20240712

REACTIONS (3)
  - Infection [Unknown]
  - Differential white blood cell count abnormal [Unknown]
  - Therapy interrupted [Unknown]
